FAERS Safety Report 4628626-0 (Version None)
Quarter: 2005Q2

REPORT INFORMATION
  Report Type: 
  Country: None (occurrence: None)
  Receive Date: 20050404
  Receipt Date: 20050323
  Transmission Date: 20051028
  Serious: Yes (Hospitalization, Other)
  Sender: FDA-Public Use
  Company Number: 2005021325

PATIENT
  Age: 57 Year
  Sex: Female

DRUGS (12)
  1. BEXTRA [Suspect]
     Indication: ILL-DEFINED DISORDER
     Dosage: 1 IN 1 D, ORAL
     Route: 048
     Dates: start: 20040801, end: 20041016
  2. NAPROXEN SODIUM [Suspect]
     Indication: NASOPHARYNGITIS
     Dosage: 220 MG (220 MG, 1 IN 1 D), ORAL
     Route: 048
     Dates: start: 20040901, end: 20041016
  3. ATORVASTATIN CALCIUM [Concomitant]
  4. CIBADREX   CIBA-GEIGY  (BENAZEPRIL HYDROCHLORIDE, HYDROCHLOROTHIAZIDE) [Concomitant]
  5. ALPRAZOLAM [Concomitant]
  6. ASPIRIN [Concomitant]
  7. PROVELLA-14 (ESTROGENS CONJUGATED, MEDROXYPROGESTERONE ACETATE) [Concomitant]
  8. CALCIUM WITH VITAMIN D (CALCIUM PHOSPHATE, CALCIUM SODIUM LACTATE, ERG [Concomitant]
  9. POTASSIUM ACETATE [Concomitant]
  10. CLOPIDOGREL BISULFATE [Concomitant]
  11. FOLIC ACID [Concomitant]
  12. NITROGLYCERIN [Concomitant]

REACTIONS (10)
  - ABASIA [None]
  - ACUTE CORONARY SYNDROME [None]
  - FALL [None]
  - JOINT INJURY [None]
  - MITRAL VALVE INCOMPETENCE [None]
  - MYOCARDIAL INFARCTION [None]
  - MYOCARDIAL ISCHAEMIA [None]
  - SYNCOPE [None]
  - TREMOR [None]
  - VENTRICULAR HYPERTROPHY [None]
